FAERS Safety Report 18418013 (Version 1)
Quarter: 2020Q4

REPORT INFORMATION
  Report Type: Other
  Country: CA (occurrence: CA)
  Receive Date: 20201022
  Receipt Date: 20201022
  Transmission Date: 20210114
  Serious: Yes (Hospitalization)
  Sender: FDA-Public Use
  Company Number: CA-CELLTRION INC.-2020CA029158

PATIENT

DRUGS (30)
  1. ELTROXIN [Concomitant]
     Active Substance: LEVOTHYROXINE
  2. NOVORAPID [Concomitant]
     Active Substance: INSULIN ASPART
  3. PANTOPRAZOLE [Concomitant]
     Active Substance: PANTOPRAZOLE
  4. RITUXIMAB (UNKNOWN) [Suspect]
     Active Substance: RITUXIMAB
     Indication: RHEUMATOID ARTHRITIS
  5. DOCUSATE SODIUM. [Concomitant]
     Active Substance: DOCUSATE SODIUM
  6. DOMPERIDONE [Concomitant]
     Active Substance: DOMPERIDONE
  7. LATANOPROST. [Concomitant]
     Active Substance: LATANOPROST
     Dosage: SOLUTION OPHTHALMIC
  8. METHOTREXATE. [Concomitant]
     Active Substance: METHOTREXATE
  9. OXYGEN. [Concomitant]
     Active Substance: OXYGEN
     Indication: DYSPNOEA
     Dosage: DOSAGE FORM: GAS FOR INHALATION
  10. ADVAIR HFA [Concomitant]
     Active Substance: FLUTICASONE PROPIONATE\SALMETEROL XINAFOATE
  11. DIPHENHYDRAMINE HYDROCHLORIDE. [Concomitant]
     Active Substance: DIPHENHYDRAMINE HYDROCHLORIDE
     Indication: PREMEDICATION
     Dosage: 50 MILLIGRAM
     Route: 048
  12. FOLIC ACID. [Concomitant]
     Active Substance: FOLIC ACID
  13. VENTOLIN [Concomitant]
     Active Substance: ALBUTEROL SULFATE
  14. XARELTO [Concomitant]
     Active Substance: RIVAROXABAN
  15. RITUXIMAB (UNKNOWN) [Suspect]
     Active Substance: RITUXIMAB
     Indication: SYSTEMIC LUPUS ERYTHEMATOSUS
     Dosage: 1000 MILLIGRAM, 1 EVERY 2 WEEKS
     Route: 042
  16. LANTUS [Concomitant]
     Active Substance: INSULIN GLARGINE
  17. PREDNISONE. [Concomitant]
     Active Substance: PREDNISONE
  18. RITUXIMAB (UNKNOWN) [Suspect]
     Active Substance: RITUXIMAB
     Indication: ANKYLOSING SPONDYLITIS
  19. APIXABAN [Concomitant]
     Active Substance: APIXABAN
     Indication: THROMBOSIS
  20. DORZOLAMIDE [Concomitant]
     Active Substance: DORZOLAMIDE
     Dosage: DOSAGE FORM: SOLUTION OPHTHALMIC
  21. HYDROMORPH CONTIN [Concomitant]
     Active Substance: HYDROMORPHONE
     Dosage: DOSAGE FORM: CAPSULE SUSTAINED-RELEASE
  22. HYDROMORPHONE [Concomitant]
     Active Substance: HYDROMORPHONE
  23. METHYLPREDNISOLONE. [Concomitant]
     Active Substance: METHYLPREDNISOLONE
     Indication: PREMEDICATION
     Dosage: 100 MILLIGRAM
     Route: 042
  24. RAMIPRIL. [Concomitant]
     Active Substance: RAMIPRIL
  25. MAGNESIUM [Concomitant]
     Active Substance: MAGNESIUM
  26. SENOKOT [Concomitant]
     Active Substance: SENNOSIDES
  27. ACETAMINOPHEN. [Concomitant]
     Active Substance: ACETAMINOPHEN
     Indication: PREMEDICATION
     Dosage: 1000 MILLIGRAM
     Route: 048
  28. COLACE [Concomitant]
     Active Substance: DOCUSATE SODIUM
  29. LASIX [Concomitant]
     Active Substance: FUROSEMIDE
  30. SIMBRINZA [Concomitant]
     Active Substance: BRIMONIDINE TARTRATE\BRINZOLAMIDE
     Dosage: DOSAGE FORM: SUSPENSION OPHTHALMIC

REACTIONS (12)
  - Asthenia [Not Recovered/Not Resolved]
  - Intentional product use issue [Not Recovered/Not Resolved]
  - Blood pressure systolic increased [Not Recovered/Not Resolved]
  - Influenza [Not Recovered/Not Resolved]
  - Off label use [Not Recovered/Not Resolved]
  - Blood pressure diastolic abnormal [Not Recovered/Not Resolved]
  - Spinal compression fracture [Not Recovered/Not Resolved]
  - Dyspnoea [Not Recovered/Not Resolved]
  - Heart rate increased [Not Recovered/Not Resolved]
  - Pulmonary thrombosis [Not Recovered/Not Resolved]
  - Ill-defined disorder [Not Recovered/Not Resolved]
  - Thrombosis [Not Recovered/Not Resolved]
